FAERS Safety Report 25812375 (Version 1)
Quarter: 2025Q3

REPORT INFORMATION
  Report Type: Spontaneous
  Country: US (occurrence: US)
  Receive Date: 20250917
  Receipt Date: 20250917
  Transmission Date: 20251020
  Serious: Yes (Other)
  Sender: ORGANON
  Company Number: US-ORGANON-O2509USA000844

PATIENT
  Age: 18 Year
  Sex: Female

DRUGS (2)
  1. NEXPLANON [Suspect]
     Active Substance: ETONOGESTREL
     Route: 059
     Dates: end: 202404
  2. NEXPLANON [Suspect]
     Active Substance: ETONOGESTREL
     Route: 058
     Dates: start: 202404, end: 2024

REACTIONS (3)
  - Complication of device removal [Recovered/Resolved]
  - Implant site paraesthesia [Unknown]
  - Nerve compression [Recovered/Resolved]

NARRATIVE: CASE EVENT DATE: 20240401
